FAERS Safety Report 5033261-9 (Version None)
Quarter: 2006Q2

REPORT INFORMATION
  Report Type: 
  Country: None (occurrence: None)
  Receive Date: 20060623
  Receipt Date: 20060612
  Transmission Date: 20061013
  Serious: Yes (Other)
  Sender: FDA-Public Use
  Company Number: CA-JNJFOC-20060602710

PATIENT

DRUGS (1)
  1. REMICADE [Suspect]
     Indication: DRUG USE FOR UNKNOWN INDICATION
     Route: 042

REACTIONS (6)
  - ARTHROPOD BITE [None]
  - DIZZINESS [None]
  - DYSPNOEA [None]
  - HEART RATE INCREASED [None]
  - PARAESTHESIA [None]
  - URTICARIA [None]
